FAERS Safety Report 25876150 (Version 2)
Quarter: 2025Q4

REPORT INFORMATION
  Report Type: Report from Study
  Country: US (occurrence: US)
  Receive Date: 20251003
  Receipt Date: 20251006
  Transmission Date: 20260117
  Serious: Yes (Other)
  Sender: TEVA
  Company Number: US-TEVA-VS-3378076

PATIENT
  Age: 43 Year
  Sex: Female

DRUGS (1)
  1. TREPROSTINIL [Suspect]
     Active Substance: TREPROSTINIL
     Indication: Pulmonary arterial hypertension
     Dosage: DOSAGE: 34 NG/KG MDV, DOSE: 34NG/KG/MIN, FREQUENCY: CONTINUOUS, 1.5 ML/H. 4 HOURS
     Route: 042
     Dates: start: 202111

REACTIONS (5)
  - Heart rate increased [Unknown]
  - Headache [Unknown]
  - Anxiety [Unknown]
  - Diarrhoea [Unknown]
  - Device programming error [Unknown]

NARRATIVE: CASE EVENT DATE: 20250901
